FAERS Safety Report 5092752-5 (Version None)
Quarter: 2006Q3

REPORT INFORMATION
  Report Type: 
  Country: None (occurrence: None)
  Receive Date: 20060830
  Receipt Date: 20030228
  Transmission Date: 20061208
  Serious: Yes (Life-Threatening, Hospitalization)
  Sender: FDA-Public Use
  Company Number: TR-NOVOPROD-225339

PATIENT
  Age: 13 Year
  Sex: Female
  Weight: 48 kg

DRUGS (4)
  1. NOVOSEVEN [Suspect]
     Indication: OFF LABEL USE
     Dosage: 3.6 MG, SINGLE
     Route: 042
     Dates: start: 20030222, end: 20030222
  2. FRESH FROZEN PLASMA [Concomitant]
     Indication: BLEEDING TIME PROLONGED
     Dosage: 4 U, UNK
     Route: 042
     Dates: start: 20030222, end: 20030222
  3. FRESH FROZEN PLASMA [Concomitant]
     Dosage: 1 U, 3. POST-OPERATIVE DAY
     Dates: start: 20030224
  4. RED BLOOD CELLS [Concomitant]
     Dosage: 4 PACKS

REACTIONS (3)
  - CAROTID ARTERY THROMBOSIS [None]
  - CEREBRAL ARTERY THROMBOSIS [None]
  - THALAMIC INFARCTION [None]
